FAERS Safety Report 16866742 (Version 2)
Quarter: 2019Q4

REPORT INFORMATION
  Report Type: Report from Study
  Country: CO (occurrence: CO)
  Receive Date: 20190930
  Receipt Date: 20191022
  Transmission Date: 20200122
  Serious: Yes (Other)
  Sender: FDA-Public Use
  Company Number: PHHY2019CO223831

PATIENT
  Age: 25 Year
  Sex: Female
  Weight: 73 kg

DRUGS (2)
  1. DEFLAZACORT [Suspect]
     Active Substance: DEFLAZACORT
     Indication: THROMBOCYTOPENIA
     Route: 065
  2. REVOLADE [Suspect]
     Active Substance: ELTROMBOPAG
     Indication: THROMBOCYTOPENIA
     Dosage: 50 MG, QD
     Route: 048
     Dates: start: 201908

REACTIONS (9)
  - Speech disorder [Unknown]
  - Platelet count decreased [Recovering/Resolving]
  - Adrenal insufficiency [Recovered/Resolved]
  - Eye disorder [Unknown]
  - Gait inability [Recovered/Resolved]
  - Dysuria [Recovered/Resolved]
  - Headache [Recovered/Resolved]
  - Sleep disorder [Unknown]
  - Feeding disorder [Recovered/Resolved]

NARRATIVE: CASE EVENT DATE: 201908
